FAERS Safety Report 5855265-6 (Version None)
Quarter: 2008Q3

REPORT INFORMATION
  Report Type: 
  Country: None (occurrence: None)
  Receive Date: 20080822
  Receipt Date: 20030912
  Transmission Date: 20090109
  Serious: No
  Sender: FDA-Public Use
  Company Number: US-ABBOTT-08P-163-0466240-00

PATIENT
  Age: 39 Year
  Sex: Male

DRUGS (1)
  1. LEVOTHYROXINE SODIUM [Suspect]
     Indication: THYROIDECTOMY

REACTIONS (3)
  - DYSGEUSIA [None]
  - DYSPHAGIA [None]
  - ORAL DISORDER [None]
